FAERS Safety Report 4770853-6 (Version None)
Quarter: 2005Q3

REPORT INFORMATION
  Report Type: 
  Country: None (occurrence: None)
  Receive Date: 20050915
  Receipt Date: 20050822
  Transmission Date: 20060218
  Serious: Yes (Hospitalization)
  Sender: FDA-Public Use
  Company Number: DE-GLAXOSMITHKLINE-D0047345A

PATIENT
  Age: 38 Year
  Sex: Female

DRUGS (4)
  1. VIANI [Suspect]
     Indication: ASTHMA
     Dosage: 300MCG TWICE PER DAY
     Route: 055
     Dates: start: 20040101, end: 20040701
  2. FLUTIDE [Suspect]
     Indication: ASTHMA
     Dosage: 100MCG PER DAY
     Route: 065
     Dates: start: 20050101, end: 20050101
  3. THYRONAJOD [Concomitant]
     Dosage: 75MCG UNKNOWN
     Route: 048
  4. CORTISONE ACETATE [Concomitant]
     Dosage: 20MG PER DAY
     Route: 048
     Dates: start: 20040301, end: 20040301

REACTIONS (10)
  - ASTHENIA [None]
  - CHEST DISCOMFORT [None]
  - CIRCULATORY COLLAPSE [None]
  - DIZZINESS [None]
  - FALL [None]
  - HYPOKALAEMIA [None]
  - MUSCLE SPASMS [None]
  - MYOSCLEROSIS [None]
  - TACHYCARDIA [None]
  - THERAPY NON-RESPONDER [None]
